FAERS Safety Report 11320751 (Version 1)
Quarter: 2015Q3

REPORT INFORMATION
  Report Type: Spontaneous
  Country: US (occurrence: None)
  Receive Date: 20150728
  Receipt Date: 20150728
  Transmission Date: 20151125
  Serious: Yes (Life-Threatening, Hospitalization)
  Sender: FDA-Public Use
  Company Number: None

PATIENT
  Age: 60 Year
  Sex: Male
  Weight: 100 kg

DRUGS (2)
  1. DIGOXIN. [Concomitant]
     Active Substance: DIGOXIN
  2. HARVONI [Suspect]
     Active Substance: LEDIPASVIR\SOFOSBUVIR
     Indication: HEPATITIS C
     Dosage: 1 PILL QD
     Route: 048

REACTIONS (2)
  - Haematoma [None]
  - Apparent death [None]

NARRATIVE: CASE EVENT DATE: 20150623
